FAERS Safety Report 20246789 (Version 3)
Quarter: 2022Q1

REPORT INFORMATION
  Report Type: Spontaneous
  Country: US (occurrence: US)
  Receive Date: 20211229
  Receipt Date: 20220225
  Transmission Date: 20220423
  Serious: Yes (Other)
  Sender: FDA-Public Use
  Company Number: US-SA-SAC20211228000693

PATIENT
  Age: 62 Year
  Sex: Male

DRUGS (22)
  1. DUPIXENT [Suspect]
     Active Substance: DUPILUMAB
     Indication: Nasal polyps
     Dosage: 300 MG, QOW
     Route: 058
     Dates: start: 202112
  2. DILTIAZEM [Concomitant]
     Active Substance: DILTIAZEM
  3. DILTIAZEM [Concomitant]
     Active Substance: DILTIAZEM
  4. XARELTO [Concomitant]
     Active Substance: RIVAROXABAN
  5. XARELTO [Concomitant]
     Active Substance: RIVAROXABAN
  6. TYLENOL [Concomitant]
     Active Substance: ACETAMINOPHEN
  7. TYLENOL [Concomitant]
     Active Substance: ACETAMINOPHEN
  8. SINGULAIR [Concomitant]
     Active Substance: MONTELUKAST SODIUM
  9. SINGULAIR [Concomitant]
     Active Substance: MONTELUKAST SODIUM
  10. VITAMINS NOS [Concomitant]
     Active Substance: VITAMINS
  11. METOPROLOL SUCCINATE [Concomitant]
     Active Substance: METOPROLOL SUCCINATE
  12. METOPROLOL SUCCINATE [Concomitant]
     Active Substance: METOPROLOL SUCCINATE
  13. FUROSEMIDE [Concomitant]
     Active Substance: FUROSEMIDE
  14. FUROSEMIDE [Concomitant]
     Active Substance: FUROSEMIDE
  15. ATORVASTATIN CALCIUM [Concomitant]
     Active Substance: ATORVASTATIN CALCIUM
  16. ATORVASTATIN CALCIUM [Concomitant]
     Active Substance: ATORVASTATIN CALCIUM
  17. ALBUTEROL SULFATE [Concomitant]
     Active Substance: ALBUTEROL SULFATE
  18. ALBUTEROL SULFATE [Concomitant]
     Active Substance: ALBUTEROL SULFATE
  19. LISINOPRIL [Concomitant]
     Active Substance: LISINOPRIL
  20. MULTI VITAMIN [ASCORBIC ACID;FOLIC ACID;NICOTINIC ACID;PYRIDOXINE HYDR [Concomitant]
  21. MONTELUKAST SODIUM [Concomitant]
     Active Substance: MONTELUKAST SODIUM
  22. IPRATROPIUM [Concomitant]
     Active Substance: IPRATROPIUM

REACTIONS (4)
  - Pneumonia [Not Recovered/Not Resolved]
  - Fatigue [Unknown]
  - Epistaxis [Unknown]
  - Product use in unapproved indication [Unknown]

NARRATIVE: CASE EVENT DATE: 20211201
